FAERS Safety Report 11457621 (Version 1)
Quarter: 2015Q3

REPORT INFORMATION
  Report Type: Spontaneous
  Country: US (occurrence: US)
  Receive Date: 20150904
  Receipt Date: 20150904
  Transmission Date: 20151125
  Serious: Yes (Hospitalization)
  Sender: FDA-Public Use
  Company Number: US-ASTRAZENECA-2015SE82909

PATIENT
  Age: 57 Year
  Sex: Female

DRUGS (4)
  1. LEVEMIR [Concomitant]
     Active Substance: INSULIN DETEMIR
  2. METFORMIN [Concomitant]
     Active Substance: METFORMIN HYDROCHLORIDE
  3. HUMALOG [Concomitant]
     Active Substance: INSULIN LISPRO
  4. BYDUREON [Suspect]
     Active Substance: EXENATIDE
     Dosage: 2 UNKNOWN
     Route: 065
     Dates: start: 20150316, end: 20150827

REACTIONS (3)
  - Abscess [Not Recovered/Not Resolved]
  - Haematoma infection [Unknown]
  - Cellulitis [Not Recovered/Not Resolved]

NARRATIVE: CASE EVENT DATE: 20150731
